FAERS Safety Report 18578085 (Version 1)
Quarter: 2020Q4

REPORT INFORMATION
  Report Type: Spontaneous
  Country: IT (occurrence: IT)
  Receive Date: 20201204
  Receipt Date: 20201204
  Transmission Date: 20210114
  Serious: Yes (Other)
  Sender: FDA-Public Use
  Company Number: IT-AMGEN-ITASP2020194721

PATIENT
  Sex: Male

DRUGS (1)
  1. FILGRASTIM [Suspect]
     Active Substance: FILGRASTIM
     Indication: INFANTILE GENETIC AGRANULOCYTOSIS
     Dosage: 10 MICROGRAM/KILOGRAM PER DAY FOR 15- 30 MINS OVER 3 CONSECUTIVE DAYS
     Route: 042

REACTIONS (2)
  - Neutropenia [Recovered/Resolved]
  - Therapeutic product effect incomplete [Unknown]
